FAERS Safety Report 18180624 (Version 1)
Quarter: 2020Q3

REPORT INFORMATION
  Report Type: Spontaneous
  Country: GB (occurrence: GB)
  Receive Date: 20200821
  Receipt Date: 20200821
  Transmission Date: 20201103
  Serious: Yes (Life-Threatening, Hospitalization)
  Sender: FDA-Public Use
  Company Number: GB-TEVA-2020-GB-1816085

PATIENT
  Age: 50 Year
  Sex: Male
  Weight: 80.9 kg

DRUGS (31)
  1. TACROLIMUS. [Concomitant]
     Active Substance: TACROLIMUS
  2. GENTAMICIN. [Concomitant]
     Active Substance: GENTAMICIN
  3. PROPOFOL. [Concomitant]
     Active Substance: PROPOFOL
  4. PHYTOMENADIONE [Concomitant]
     Active Substance: PHYTONADIONE
  5. HARTMANN^S SOLUTION [Concomitant]
     Active Substance: CALCIUM CHLORIDE\POTASSIUM CHLORIDE\SODIUM CHLORIDE\SODIUM LACTATE
  6. PARACETAMOL [Concomitant]
     Active Substance: ACETAMINOPHEN
  7. TRAMADOL HYDROCHLORIDE. [Concomitant]
     Active Substance: TRAMADOL HYDROCHLORIDE
  8. MORPHINE SULFATE. [Concomitant]
     Active Substance: MORPHINE SULFATE
  9. METRONIDAZOLE. [Concomitant]
     Active Substance: METRONIDAZOLE
  10. COLECALCIFEROL [Concomitant]
     Active Substance: CHOLECALCIFEROL
  11. MAGNESIUM SULFATE. [Concomitant]
     Active Substance: MAGNESIUM SULFATE
  12. TEICOPLANIN [Concomitant]
     Active Substance: TEICOPLANIN
  13. FAMOTIDINE. [Suspect]
     Active Substance: FAMOTIDINE
     Dosage: 20 MG
     Route: 048
     Dates: start: 20200612, end: 20200623
  14. AZTREONAM. [Concomitant]
     Active Substance: AZTREONAM
  15. SANDO?K [Concomitant]
  16. ALLOPURINOL. [Concomitant]
     Active Substance: ALLOPURINOL
  17. ENOXAPARIN [Concomitant]
     Active Substance: ENOXAPARIN
  18. MENTHOL. [Concomitant]
     Active Substance: MENTHOL
  19. AMLODIPINE [Concomitant]
     Active Substance: AMLODIPINE BESYLATE
  20. OXYCODONE [Concomitant]
     Active Substance: OXYCODONE
  21. CLOPIDOGREL [Concomitant]
     Active Substance: CLOPIDOGREL BISULFATE
  22. ACETYLSALICYLIC ACID [Concomitant]
     Active Substance: ASPIRIN
  23. CO?AMOXICLAV [Concomitant]
     Active Substance: AMOXICILLIN\CLAVULANATE POTASSIUM
  24. ACCRETE D3 [Concomitant]
     Active Substance: CALCIUM CARBONATE\CHOLECALCIFEROL
  25. FENTANYL. [Concomitant]
     Active Substance: FENTANYL
  26. CIPROFLOXACIN. [Concomitant]
     Active Substance: CIPROFLOXACIN
  27. RANITIDINE. [Concomitant]
     Active Substance: RANITIDINE
  28. FORTISIP [Concomitant]
     Active Substance: CARBOHYDRATES\FATTY ACIDS\MINERALS\PROTEIN\VITAMINS
  29. ERTAPENEM SODIUM [Concomitant]
     Active Substance: ERTAPENEM SODIUM
  30. MYCOPHENOLATE MOFETIL. [Concomitant]
     Active Substance: MYCOPHENOLATE MOFETIL
  31. METOCLOPRAMIDE HYDROCHLORIDE. [Concomitant]
     Active Substance: METOCLOPRAMIDE HYDROCHLORIDE

REACTIONS (1)
  - Thrombocytopenia [Recovered/Resolved]

NARRATIVE: CASE EVENT DATE: 20200622
